FAERS Safety Report 8019254-8 (Version None)
Quarter: 2012Q1

REPORT INFORMATION
  Report Type: 
  Country: None (occurrence: None)
  Receive Date: 20120103
  Receipt Date: 20111228
  Transmission Date: 20120608
  Serious: Yes (Life-Threatening, Hospitalization, Disabling)
  Sender: FDA-Public Use
  Company Number: US-CELGENEUS-163-21880-11091240

PATIENT
  Sex: Male
  Weight: 130.75 kg

DRUGS (24)
  1. REVLIMID [Suspect]
     Route: 048
     Dates: start: 20110922, end: 20110929
  2. CRESTOR [Concomitant]
     Dosage: 10 MILLIGRAM
     Route: 048
     Dates: start: 20030101
  3. VELCADE [Concomitant]
     Route: 041
     Dates: start: 20110527, end: 20110601
  4. VELCADE [Concomitant]
     Route: 065
     Dates: start: 20110718
  5. VELCADE [Concomitant]
     Route: 065
     Dates: start: 20110725
  6. LOTREL [Concomitant]
     Dosage: 40 MILLIGRAM
     Route: 048
     Dates: start: 20030101
  7. LYRICA [Concomitant]
     Dosage: 50 MILLIGRAM
     Route: 048
     Dates: start: 20090101
  8. NEXIUM [Concomitant]
     Dosage: 40 MILLIGRAM
     Route: 048
     Dates: start: 20000101
  9. GLUCOSAMINE [Concomitant]
     Dosage: 1
     Route: 048
     Dates: start: 19950101
  10. ZOMETA [Concomitant]
     Route: 041
     Dates: start: 20110527
  11. M.V.I. [Concomitant]
     Dosage: 1
     Route: 048
     Dates: start: 19900101
  12. VELCADE [Concomitant]
     Route: 065
     Dates: start: 20110801
  13. IMODIUM [Concomitant]
     Route: 048
     Dates: start: 20110601, end: 20110601
  14. ZETIA [Concomitant]
     Dosage: 10 MILLIGRAM
     Route: 048
     Dates: start: 20110101
  15. METOPROLOL [Concomitant]
     Dosage: 25 MILLIGRAM
     Route: 048
     Dates: start: 20020101
  16. CHLORTHALIDONE [Concomitant]
     Dosage: 25 MILLIGRAM
     Route: 048
     Dates: start: 20030101
  17. ZYRTEC [Concomitant]
     Dosage: 10 MILLIGRAM
     Route: 048
     Dates: start: 19950101
  18. MELATONIN [Concomitant]
     Dosage: 1
     Route: 048
     Dates: start: 19850101
  19. ANTIEMETIC [Concomitant]
     Route: 048
     Dates: start: 20110601, end: 20110601
  20. HEPARIN [Concomitant]
     Route: 065
     Dates: start: 20110814
  21. REVLIMID [Suspect]
     Indication: MULTIPLE MYELOMA
     Dosage: 15 MILLIGRAM
     Route: 048
     Dates: start: 20110618, end: 20110810
  22. ASPIRIN [Concomitant]
     Route: 048
     Dates: start: 19900101
  23. METAMUCIL-2 [Concomitant]
     Indication: PROPHYLAXIS
     Dosage: 1
     Route: 048
  24. PLAVIX [Concomitant]
     Route: 065
     Dates: start: 20110814

REACTIONS (1)
  - PERICARDITIS [None]
